FAERS Safety Report 8288305-8 (Version None)
Quarter: 2012Q2

REPORT INFORMATION
  Report Type: 
  Country: None (occurrence: None)
  Receive Date: 20120416
  Receipt Date: 20120402
  Transmission Date: 20120825
  Serious: Yes (Other)
  Sender: FDA-Public Use
  Company Number: CA-FRI-1000029769

PATIENT
  Sex: Female

DRUGS (9)
  1. GABAPENTIN [Suspect]
     Dosage: 600 MG
  2. BENZTROPINE MESYLATE [Suspect]
  3. METHADON HCL TAB [Suspect]
  4. NORTRIPTYLINE HCL [Suspect]
  5. ZOPICLONE [Suspect]
  6. GABAPENTIN [Suspect]
     Dosage: 1200 MG
  7. SEROQUEL [Suspect]
     Dosage: 300 MG
     Route: 064
  8. ESCITALOPRAM [Suspect]
     Route: 064
  9. RABEPRAZOLE SODIUM [Suspect]

REACTIONS (4)
  - TRISMUS [None]
  - DIARRHOEA [None]
  - POOR QUALITY SLEEP [None]
  - HYPERTONIA [None]
